FAERS Safety Report 8485075-5 (Version None)
Quarter: 2012Q3

REPORT INFORMATION
  Report Type: 
  Country: None (occurrence: None)
  Receive Date: 20120703
  Receipt Date: 20120629
  Transmission Date: 20120928
  Serious: Yes (Other)
  Sender: FDA-Public Use
  Company Number: CH-BAYER-2012-064231

PATIENT
  Sex: Female

DRUGS (2)
  1. MIRENA [Suspect]
     Indication: IRON DEFICIENCY
  2. MIRENA [Suspect]
     Indication: MENORRHAGIA
     Dosage: UNK
     Dates: start: 20070704

REACTIONS (3)
  - ALOPECIA [None]
  - HAEMORRHAGE [None]
  - INFLAMMATION [None]
